FAERS Safety Report 8536643 (Version 19)
Quarter: 2015Q4

REPORT INFORMATION
  Report Type: Report from Study
  Country: CA (occurrence: CA)
  Receive Date: 20120430
  Receipt Date: 20151015
  Transmission Date: 20160305
  Serious: Yes (Hospitalization, Other)
  Sender: FDA-Public Use
  Company Number: CA-ROCHE-1062603

PATIENT
  Age: 58 Year
  Sex: Male
  Weight: 88.5 kg

DRUGS (11)
  1. ACTEMRA [Suspect]
     Active Substance: TOCILIZUMAB
     Route: 042
     Dates: start: 20130328
  2. RABEPRAZOLE [Concomitant]
     Active Substance: RABEPRAZOLE
  3. LIPITOR [Concomitant]
     Active Substance: ATORVASTATIN CALCIUM
  4. ASA [Concomitant]
     Active Substance: ASPIRIN
  5. PIOGLITAZONE HYDROCHLORIDE. [Concomitant]
     Active Substance: PIOGLITAZONE HYDROCHLORIDE
  6. ELATROL [Concomitant]
  7. EZETROL [Concomitant]
     Active Substance: EZETIMIBE
  8. MICARDIS [Concomitant]
     Active Substance: TELMISARTAN
  9. INSULIN [Concomitant]
     Active Substance: INSULIN NOS
     Indication: DIABETES MELLITUS
  10. ACTEMRA [Suspect]
     Active Substance: TOCILIZUMAB
     Indication: RHEUMATOID ARTHRITIS
     Route: 042
     Dates: start: 20120404
  11. ACTEMRA [Suspect]
     Active Substance: TOCILIZUMAB
     Route: 042
     Dates: start: 20141015

REACTIONS (17)
  - Weight increased [Recovered/Resolved]
  - Hypoaesthesia [Recovering/Resolving]
  - Body temperature decreased [Unknown]
  - Influenza [Recovering/Resolving]
  - Blindness [Recovering/Resolving]
  - Pain [Recovering/Resolving]
  - Musculoskeletal pain [Recovering/Resolving]
  - Keratitis [Unknown]
  - Blood pressure increased [Unknown]
  - Weight decreased [Unknown]
  - Arthralgia [Not Recovered/Not Resolved]
  - Paraesthesia [Recovering/Resolving]
  - Drug effect decreased [Unknown]
  - Poor venous access [Unknown]
  - Blood glucose increased [Recovered/Resolved]
  - Infusion related reaction [Unknown]
  - Blood pressure diastolic decreased [Unknown]

NARRATIVE: CASE EVENT DATE: 20120405
